FAERS Safety Report 5670642-4 (Version None)
Quarter: 2008Q1

REPORT INFORMATION
  Report Type: 
  Country: None (occurrence: None)
  Receive Date: 20080313
  Receipt Date: 20080310
  Transmission Date: 20080703
  Serious: Yes (Other)
  Sender: FDA-Public Use
  Company Number: OSCN-PR-0803S-0145

PATIENT
  Sex: Male

DRUGS (3)
  1. OMNISCAN [Suspect]
     Indication: DRUG USE FOR UNKNOWN INDICATION
     Dosage: SINGLE DOSE; SINGLE DOSE; SINGLE DOSE
     Dates: start: 20051028, end: 20051028
  2. OMNISCAN [Suspect]
     Indication: DRUG USE FOR UNKNOWN INDICATION
     Dosage: SINGLE DOSE; SINGLE DOSE; SINGLE DOSE
     Dates: start: 20051221, end: 20051221
  3. OMNISCAN [Suspect]
     Indication: DRUG USE FOR UNKNOWN INDICATION
     Dosage: SINGLE DOSE; SINGLE DOSE; SINGLE DOSE
     Dates: start: 20060203, end: 20060203

REACTIONS (1)
  - NEPHROGENIC SYSTEMIC FIBROSIS [None]
